FAERS Safety Report 5708530-7 (Version None)
Quarter: 2008Q2

REPORT INFORMATION
  Report Type: 
  Country: None (occurrence: None)
  Receive Date: 20080417
  Receipt Date: 20080407
  Transmission Date: 20081010
  Serious: Yes (Death)
  Sender: FDA-Public Use
  Company Number: DE-PFIZER INC-2008031199

PATIENT
  Sex: Male
  Weight: 82 kg

DRUGS (4)
  1. SUTENT [Suspect]
     Indication: METASTATIC RENAL CELL CARCINOMA
     Route: 048
  2. NOVALGIN [Concomitant]
     Route: 048
  3. ZOFRAN [Concomitant]
     Route: 048
  4. BUPRENORPHINE HYDROCHLORIDE [Concomitant]
     Route: 048

REACTIONS (1)
  - DEATH [None]
